FAERS Safety Report 11964530 (Version 4)
Quarter: 2016Q4

REPORT INFORMATION
  Report Type: Spontaneous
  Country: US (occurrence: US)
  Receive Date: 20160127
  Receipt Date: 20161005
  Transmission Date: 20170206
  Serious: Yes (Hospitalization)
  Sender: FDA-Public Use
  Company Number: US-ROCHE-1700238

PATIENT
  Sex: Female
  Weight: 103.42 kg

DRUGS (3)
  1. CELLCEPT [Suspect]
     Active Substance: MYCOPHENOLATE MOFETIL\MYCOPHENOLATE MOFETIL HYDROCHLORIDE
     Indication: IMMUNOSUPPRESSION
     Dosage: 2 PILLS TWO TIMES A DAY
     Route: 048
     Dates: start: 20050426, end: 20110311
  2. RAPAMUNE [Suspect]
     Active Substance: SIROLIMUS
     Indication: RENAL TRANSPLANT
     Route: 048
     Dates: start: 200504
  3. PREDNISONE. [Suspect]
     Active Substance: PREDNISONE
     Indication: PRODUCT USED FOR UNKNOWN INDICATION
     Route: 065

REACTIONS (10)
  - Speech disorder [Recovering/Resolving]
  - Epistaxis [Unknown]
  - Seizure [Recovering/Resolving]
  - Mouth haemorrhage [Unknown]
  - Central nervous system lesion [Recovered/Resolved]
  - Malaise [Recovering/Resolving]
  - Haemoglobin decreased [Unknown]
  - Contusion [Recovered/Resolved]
  - Memory impairment [Unknown]
  - Feeding disorder [Recovering/Resolving]

NARRATIVE: CASE EVENT DATE: 2011
